FAERS Safety Report 13351023 (Version 1)
Quarter: 2017Q1

REPORT INFORMATION
  Report Type: Spontaneous
  Country: US (occurrence: US)
  Receive Date: 20170320
  Receipt Date: 20170320
  Transmission Date: 20170429
  Serious: No
  Sender: FDA-Public Use
  Company Number: US-PFIZER INC-2017113159

PATIENT
  Age: 54 Year
  Sex: Female

DRUGS (6)
  1. ALECTINIB [Suspect]
     Active Substance: ALECTINIB
     Indication: ADENOCARCINOMA
  2. CRIZOTINIB [Suspect]
     Active Substance: CRIZOTINIB
     Indication: NON-SMALL CELL LUNG CANCER
     Dosage: UNK
     Dates: start: 201410, end: 201603
  3. CRIZOTINIB [Suspect]
     Active Substance: CRIZOTINIB
     Indication: ADENOCARCINOMA
  4. CRIZOTINIB [Suspect]
     Active Substance: CRIZOTINIB
     Indication: ANAPLASTIC LYMPHOMA KINASE GENE MUTATION
  5. ALECTINIB [Suspect]
     Active Substance: ALECTINIB
     Indication: NON-SMALL CELL LUNG CANCER
     Dosage: UNK
     Dates: start: 201604
  6. ALECTINIB [Suspect]
     Active Substance: ALECTINIB
     Indication: ANAPLASTIC LYMPHOMA KINASE GENE MUTATION

REACTIONS (2)
  - Neoplasm progression [Unknown]
  - Fatigue [Recovering/Resolving]
